FAERS Safety Report 21937657 (Version 3)
Quarter: 2023Q1

REPORT INFORMATION
  Report Type: Spontaneous
  Country: CZ (occurrence: CZ)
  Receive Date: 20230201
  Receipt Date: 20230307
  Transmission Date: 20230418
  Serious: Yes (Hospitalization)
  Sender: FDA-Public Use
  Company Number: CZ-Accord-297405

PATIENT
  Age: 66 Year
  Sex: Female
  Weight: 66 kg

DRUGS (18)
  1. OXALIPLATIN [Suspect]
     Active Substance: OXALIPLATIN
     Indication: Product used for unknown indication
     Dosage: 100 MG/M2?FORM OF ADMIN. CONCENTRATE FOR SOLUTION FOR INFUSION
     Dates: start: 20230103
  2. GEMCITABINE [Suspect]
     Active Substance: GEMCITABINE
     Indication: Product used for unknown indication
     Dosage: 1000 MG/M2?FORM OF ADMIN. CONCENTRATE FOR SOLUTION FOR INFUSION
     Dates: start: 20230103
  3. EPCORITAMAB [Suspect]
     Active Substance: EPCORITAMAB
     Indication: Product used for unknown indication
     Dosage: FULL DOSE; SINGLE?ROA-20066000?2.1
     Route: 058
  4. EPCORITAMAB [Suspect]
     Active Substance: EPCORITAMAB
     Dosage: INTERMEDIATE DOSE; SINGLE?ROA-20066000?2.1
     Dates: start: 20230110, end: 20230110
  5. EPCORITAMAB [Suspect]
     Active Substance: EPCORITAMAB
     Dosage: PRIMING DOSE; SINGLE?ROA-20066000?2.1
     Route: 058
     Dates: start: 20230103, end: 20230103
  6. TAMIFLU [Concomitant]
     Active Substance: OSELTAMIVIR PHOSPHATE
     Indication: Product used for unknown indication
     Dates: start: 20230120, end: 20230122
  7. AMOXICILLIN\CLAVULANATE POTASSIUM [Concomitant]
     Active Substance: AMOXICILLIN\CLAVULANATE POTASSIUM
     Indication: Product used for unknown indication
     Dates: start: 20230123, end: 20230127
  8. VENLAFAXINE HYDROCHLORIDE [Concomitant]
     Active Substance: VENLAFAXINE HYDROCHLORIDE
     Indication: Product used for unknown indication
     Dates: start: 2014
  9. METOCLOPRAMIDE HYDROCHLORIDE [Concomitant]
     Active Substance: METOCLOPRAMIDE HYDROCHLORIDE
     Indication: Product used for unknown indication
     Dates: start: 2022
  10. FILGRASTIM [Concomitant]
     Active Substance: FILGRASTIM
     Indication: Product used for unknown indication
     Dates: start: 20230110, end: 20230112
  11. BISEPTOL [Concomitant]
     Active Substance: SULFAMETHOXAZOLE\TRIMETHOPRIM
     Indication: Product used for unknown indication
     Dates: start: 2022
  12. PANTOPRAZOLE SODIUM [Concomitant]
     Active Substance: PANTOPRAZOLE SODIUM
     Indication: Product used for unknown indication
     Dates: start: 2022
  13. PARALEN [Concomitant]
     Indication: Product used for unknown indication
     Dosage: 1000 MG?ROA-20053000?2.1
     Route: 048
     Dates: start: 20230103, end: 20230103
  14. PARALEN [Concomitant]
     Dosage: 1000 MG?ROA-20053000?2.1
     Route: 048
     Dates: start: 20230118, end: 20230118
  15. ZYRTEC [Concomitant]
     Active Substance: CETIRIZINE HYDROCHLORIDE
     Indication: Product used for unknown indication
     Dosage: 10 MG?ROA-20053000
     Route: 048
     Dates: start: 20230103, end: 20230103
  16. ZYRTEC [Concomitant]
     Active Substance: CETIRIZINE HYDROCHLORIDE
     Dosage: 10 MG?ROA-20053000
     Route: 048
     Dates: start: 20230118, end: 20230118
  17. PREDNISONE [Concomitant]
     Active Substance: PREDNISONE
     Indication: Product used for unknown indication
     Dosage: 100 MG?ROA-20053000
     Route: 048
     Dates: start: 20230103, end: 20230113
  18. PREDNISONE [Concomitant]
     Active Substance: PREDNISONE
     Dosage: 100 MG?ROA-20053000
     Route: 048
     Dates: start: 20230103, end: 20230106

REACTIONS (3)
  - Hyperphosphataemia [Recovered/Resolved]
  - Tumour lysis syndrome [Recovered/Resolved]
  - Cytokine release syndrome [Recovered/Resolved]

NARRATIVE: CASE EVENT DATE: 20230104
